FAERS Safety Report 7050220-5 (Version None)
Quarter: 2010Q4

REPORT INFORMATION
  Report Type: 
  Country: None (occurrence: None)
  Receive Date: 20101018
  Receipt Date: 20101007
  Transmission Date: 20110411
  Serious: Yes (Other)
  Sender: FDA-Public Use
  Company Number: US-PFIZER INC-2010036045

PATIENT
  Sex: Male
  Weight: 86.168 kg

DRUGS (7)
  1. SUTENT [Suspect]
     Indication: RENAL CANCER STAGE IV
     Dosage: 50 MG, 1X/DAY
     Route: 048
     Dates: start: 20091201
  2. SUTENT [Suspect]
     Indication: RENAL CANCER
  3. WARFARIN SODIUM [Concomitant]
     Indication: THROMBOSIS
     Dosage: UNK
     Route: 048
     Dates: start: 20091201
  4. AMLODIPINE [Concomitant]
     Indication: HYPERTENSION
     Dosage: 5 MG, 1X/DAY
  5. LISINOPRIL [Concomitant]
     Indication: HYPERTENSION
     Dosage: 20 MG, 1X/DAY
  6. LEXAPRO [Concomitant]
     Indication: DEPRESSION
     Dosage: 5 MG, 1X/DAY
     Route: 048
  7. HYDROCHLOROTHIAZIDE [Concomitant]
     Indication: HYPERTENSION
     Dosage: 25 MG, 1X/DAY
     Route: 048

REACTIONS (5)
  - ARTHRALGIA [None]
  - HAEMATOCHEZIA [None]
  - HYPOTHYROIDISM [None]
  - PALMAR-PLANTAR ERYTHRODYSAESTHESIA SYNDROME [None]
  - SKIN EXFOLIATION [None]
